FAERS Safety Report 25735890 (Version 1)
Quarter: 2025Q3

REPORT INFORMATION
  Report Type: Spontaneous
  Country: US (occurrence: US)
  Receive Date: 20250828
  Receipt Date: 20250828
  Transmission Date: 20251020
  Serious: Yes (Other)
  Sender: SANDOZ
  Company Number: US-002147023-NVSC2023US112961

PATIENT
  Age: 53 Year
  Sex: Female
  Weight: 102 kg

DRUGS (13)
  1. ALLOPURINOL [Suspect]
     Active Substance: ALLOPURINOL
     Indication: Psoriatic arthropathy
     Route: 065
  2. ALLOPURINOL [Suspect]
     Active Substance: ALLOPURINOL
     Route: 065
     Dates: start: 2021
  3. COSENTYX [Suspect]
     Active Substance: SECUKINUMAB
     Indication: Psoriatic arthropathy
     Route: 042
  4. HUMIRA [Suspect]
     Active Substance: ADALIMUMAB
     Indication: Product used for unknown indication
     Route: 065
  5. LEVOTHYROXINE SODIUM [Suspect]
     Active Substance: LEVOTHYROXINE SODIUM
     Indication: Psoriatic arthropathy
     Route: 065
  6. METOPROLOL [Suspect]
     Active Substance: METOPROLOL
     Indication: Psoriatic arthropathy
     Route: 065
  7. MAGNESIUM [Suspect]
     Active Substance: MAGNESIUM
     Indication: Psoriatic arthropathy
     Route: 065
  8. MODAFINIL [Suspect]
     Active Substance: MODAFINIL
     Indication: Psoriatic arthropathy
     Route: 065
  9. OMEPRAZOLE [Suspect]
     Active Substance: OMEPRAZOLE
     Indication: Psoriatic arthropathy
     Route: 065
  10. PANTOPRAZOLE [Suspect]
     Active Substance: PANTOPRAZOLE
     Indication: Psoriatic arthropathy
     Route: 065
  11. SUCRALFATE [Suspect]
     Active Substance: SUCRALFATE
     Indication: Psoriatic arthropathy
     Route: 065
  12. SULFASALAZINE [Suspect]
     Active Substance: SULFASALAZINE
     Indication: Psoriatic arthropathy
     Route: 065
  13. TRIAMCINOLONE [Suspect]
     Active Substance: TRIAMCINOLONE
     Indication: Psoriatic arthropathy
     Route: 065

REACTIONS (14)
  - Psoriatic arthropathy [Unknown]
  - Arthralgia [Unknown]
  - Musculoskeletal stiffness [Unknown]
  - Pain in extremity [Unknown]
  - Peripheral swelling [Unknown]
  - Back disorder [Unknown]
  - Psoriasis [Unknown]
  - Rash [Unknown]
  - Liver function test increased [Unknown]
  - Joint noise [Unknown]
  - Nodal osteoarthritis [Unknown]
  - Tenderness [Unknown]
  - Product use in unapproved indication [Unknown]
  - Drug ineffective [Unknown]

NARRATIVE: CASE EVENT DATE: 20230201
